FAERS Safety Report 7477125-X (Version None)
Quarter: 2011Q2

REPORT INFORMATION
  Report Type: 
  Country: None (occurrence: None)
  Receive Date: 20110512
  Receipt Date: 20110126
  Transmission Date: 20111010
  Serious: No
  Sender: FDA-Public Use
  Company Number: US-NOVEN-11US001666

PATIENT
  Sex: Female

DRUGS (2)
  1. ANTI-ASTHMATICS [Concomitant]
     Indication: ASTHMA
     Route: 055
  2. DAYTRANA [Suspect]
     Indication: ATTENTION DEFICIT/HYPERACTIVITY DISORDER
     Dosage: 15 MG, UNK
     Route: 062
     Dates: start: 20100101

REACTIONS (7)
  - DISTURBANCE IN SOCIAL BEHAVIOUR [None]
  - AGGRESSION [None]
  - INCORRECT DRUG ADMINISTRATION DURATION [None]
  - RESTLESSNESS [None]
  - DRUG INEFFECTIVE [None]
  - DRUG DOSE OMISSION [None]
  - PRODUCT QUALITY ISSUE [None]
